FAERS Safety Report 6152257-7 (Version None)
Quarter: 2009Q2

REPORT INFORMATION
  Report Type: 
  Country: None (occurrence: None)
  Receive Date: 20090410
  Receipt Date: 20090406
  Transmission Date: 20091009
  Serious: Yes (Other)
  Sender: FDA-Public Use
  Company Number: CH-AMGEN-US274481

PATIENT
  Age: 57 Year
  Sex: Female
  Weight: 95 kg

DRUGS (7)
  1. ENBREL [Suspect]
     Indication: PSORIATIC ARTHROPATHY
     Dates: start: 20060101, end: 20071231
  2. METHOTREXATE [Suspect]
     Indication: PSORIATIC ARTHROPATHY
     Dates: end: 20080707
  3. FOLIC ACID [Concomitant]
  4. MODURETIC 5-50 [Concomitant]
     Dosage: 5 MG, 1-2 TIMES PER WEEK
  5. FROBEN [Concomitant]
     Dosage: 50 MG, 2-4 TIMES PER DAY
  6. ARIMIDEX [Concomitant]
  7. STRUCTUM [Concomitant]

REACTIONS (9)
  - BRONCHITIS [None]
  - COUGH [None]
  - DIARRHOEA [None]
  - FATIGUE [None]
  - NASOPHARYNGITIS [None]
  - OEDEMA PERIPHERAL [None]
  - PIGMENTATION DISORDER [None]
  - PYREXIA [None]
  - SKIN INDURATION [None]
